FAERS Safety Report 5109138-7 (Version None)
Quarter: 2006Q3

REPORT INFORMATION
  Report Type: 
  Country: None (occurrence: None)
  Receive Date: 20060918
  Receipt Date: 20060830
  Transmission Date: 20061208
  Serious: Yes (Hospitalization)
  Sender: FDA-Public Use
  Company Number: US200608006919

PATIENT
  Sex: Male

DRUGS (2)
  1. HUMULIN 70/30 [Suspect]
     Indication: DIABETES MELLITUS NON-INSULIN-DEPENDENT
     Dosage: AS NEEDED
     Dates: start: 20040101
  2. HUMULIN R [Suspect]
     Indication: DIABETES MELLITUS NON-INSULIN-DEPENDENT
     Dosage: AS NEEDED

REACTIONS (5)
  - BILIARY TRACT DISORDER [None]
  - BLOOD GLUCOSE INCREASED [None]
  - GALLBLADDER PERFORATION [None]
  - PAIN [None]
  - STENT OCCLUSION [None]
